FAERS Safety Report 13781926 (Version 1)
Quarter: 2017Q3

REPORT INFORMATION
  Report Type: Spontaneous
  Country: US (occurrence: US)
  Receive Date: 20170724
  Receipt Date: 20170724
  Transmission Date: 20171127
  Serious: Yes (Other)
  Sender: FDA-Public Use
  Company Number: US-SA-2017SA133981

PATIENT
  Sex: Female
  Weight: 70.3 kg

DRUGS (24)
  1. BENZONATATE. [Concomitant]
     Active Substance: BENZONATATE
     Dosage: DOSE:1 CAPSULE AS NEEDED
     Route: 048
     Dates: start: 20170109
  2. NEURONTIN [Concomitant]
     Active Substance: GABAPENTIN
     Route: 048
     Dates: start: 20161230
  3. EPIPEN [Concomitant]
     Active Substance: EPINEPHRINE
     Indication: ANAPHYLACTIC REACTION
     Dates: start: 20170711
  4. ALPRAZOLAM. [Concomitant]
     Active Substance: ALPRAZOLAM
     Dosage: DOSE: 1 DOSE AS DIRECTED
     Route: 048
     Dates: start: 20160105
  5. DIPHENHYDRAMINE. [Concomitant]
     Active Substance: DIPHENHYDRAMINE
     Indication: PREMEDICATION
     Dosage: 01 DOSE PRIOR TO INFUSION
     Dates: start: 20170711
  6. VENTOLIN [Concomitant]
     Active Substance: ALBUTEROL SULFATE
     Dosage: DOSE: 1 PUFF EVERY 4-6 HOURS AS NEEDED
     Dates: start: 20170109
  7. PANTOPRAZOLE [Concomitant]
     Active Substance: PANTOPRAZOLE
     Dosage: DOSE: 1 TAB
     Route: 048
     Dates: start: 20160719
  8. POTASSIUM [Concomitant]
     Active Substance: POTASSIUM
     Dosage: DOSE: 1 TAB
     Route: 048
     Dates: start: 20151222
  9. ACETAMINOPHEN. [Concomitant]
     Active Substance: ACETAMINOPHEN
     Indication: PREMEDICATION
     Dosage: 01I DOSE PRIOR TO INFUSION
     Dates: start: 20170711
  10. NORMAL SALINE [Concomitant]
     Active Substance: SODIUM CHLORIDE
     Indication: MEDICATION DILUTION
     Dates: start: 20170711
  11. ZOFRAN [Concomitant]
     Active Substance: ONDANSETRON HYDROCHLORIDE
     Dates: start: 20170425
  12. WELLBUTRIN XL [Concomitant]
     Active Substance: BUPROPION HYDROCHLORIDE
     Dosage: DOSE 1 TABLET
     Route: 048
     Dates: start: 20161220
  13. LAMICTAL [Concomitant]
     Active Substance: LAMOTRIGINE
     Dosage: DOSE: 1 TAB
     Route: 048
     Dates: start: 20150113
  14. FUROSEMIDE. [Concomitant]
     Active Substance: FUROSEMIDE
     Dosage: DOSE: 1 TAB
     Route: 048
     Dates: start: 20160105
  15. CYMBALTA [Concomitant]
     Active Substance: DULOXETINE HYDROCHLORIDE
     Dosage: DOSE: 1 CAPSULE
     Route: 048
     Dates: start: 20160719
  16. CARVEDILOL. [Concomitant]
     Active Substance: CARVEDILOL
     Dosage: DOSE: 1 TAB
     Dates: start: 20170105
  17. PROMETHAZINE [Concomitant]
     Active Substance: PROMETHAZINE\PROMETHAZINE HYDROCHLORIDE
     Dates: start: 20140112
  18. SOLU-MEDROL [Concomitant]
     Active Substance: METHYLPREDNISOLONE SODIUM SUCCINATE
     Indication: ANAPHYLACTIC REACTION
     Dates: start: 20170711
  19. MUCINEX [Concomitant]
     Active Substance: GUAIFENESIN
     Dosage: DOSE: 1 TAB
     Route: 048
     Dates: start: 20161108
  20. SINGULAIR [Concomitant]
     Active Substance: MONTELUKAST SODIUM
     Dosage: DOSE: 1 TAB
     Route: 048
     Dates: start: 20140716
  21. FABRAZYME [Suspect]
     Active Substance: AGALSIDASE BETA
     Indication: LIPIDOSIS
     Route: 041
  22. FABRAZYME [Suspect]
     Active Substance: AGALSIDASE BETA
     Indication: FABRY^S DISEASE
     Route: 041
  23. ACETAMINOPHEN. [Concomitant]
     Active Substance: ACETAMINOPHEN
     Indication: ANAPHYLACTIC REACTION
     Dosage: 01I DOSE PRIOR TO INFUSION
     Dates: start: 20170711
  24. DIPHENHYDRAMINE. [Concomitant]
     Active Substance: DIPHENHYDRAMINE
     Indication: ANAPHYLACTIC REACTION
     Dosage: 01 DOSE PRIOR TO INFUSION
     Dates: start: 20170711

REACTIONS (1)
  - Pericardial effusion [Unknown]
